FAERS Safety Report 6675549-1 (Version None)
Quarter: 2010Q2

REPORT INFORMATION
  Report Type: 
  Country: None (occurrence: None)
  Receive Date: 20100409
  Receipt Date: 20100324
  Transmission Date: 20101027
  Serious: Yes (Hospitalization, Other)
  Sender: FDA-Public Use
  Company Number: PHHO2009CN08500

PATIENT
  Sex: Male
  Weight: 85 kg

DRUGS (3)
  1. ALISKIREN ALI+TAB+CVR [Suspect]
     Indication: CARDIOVASCULAR DISORDER
     Dosage: UNK
     Route: 048
     Dates: start: 20090326, end: 20090429
  2. ALISKIREN ALI+TAB+CVR [Suspect]
     Dosage: NOT TREATMENT
     Dates: start: 20090430, end: 20090520
  3. ALISKIREN ALI+TAB+CVR [Suspect]
     Dosage: UNK
     Route: 048
     Dates: start: 20090521

REACTIONS (9)
  - CONCOMITANT DISEASE PROGRESSION [None]
  - DIABETIC NEPHROPATHY [None]
  - DIABETIC NEUROPATHY [None]
  - DIABETIC RETINOPATHY [None]
  - OEDEMA PERIPHERAL [None]
  - RENAL DISORDER [None]
  - RETINAL LASER COAGULATION [None]
  - SCROTAL OEDEMA [None]
  - VISION BLURRED [None]
